FAERS Safety Report 10445268 (Version 2)
Quarter: 2015Q1

REPORT INFORMATION
  Report Type: Spontaneous
  Country: US (occurrence: US)
  Receive Date: 20140910
  Receipt Date: 20150122
  Transmission Date: 20150720
  Serious: Yes (Death, Hospitalization, Disabling, Other)
  Sender: FDA-Public Use
  Company Number: US-009507513-1409USA004493

PATIENT
  Sex: Male
  Weight: 136.5 kg

DRUGS (1)
  1. JANUVIA [Suspect]
     Active Substance: SITAGLIPTIN PHOSPHATE
     Indication: TYPE 2 DIABETES MELLITUS
     Dosage: 100 MG, QD
     Route: 048
     Dates: start: 20111128, end: 20140605

REACTIONS (31)
  - Metastases to lung [Unknown]
  - Arteriosclerosis coronary artery [Unknown]
  - Atelectasis [Unknown]
  - Skin ulcer [Unknown]
  - Nephrolithiasis [Unknown]
  - Atelectasis [Unknown]
  - Thrombocytopenia [Unknown]
  - Pancreatic carcinoma metastatic [Fatal]
  - Disease complication [Fatal]
  - Cholecystectomy [Unknown]
  - Hepatic steatosis [Unknown]
  - Varicose vein [Unknown]
  - Sinus tachycardia [Unknown]
  - Hyperlipidaemia [Unknown]
  - Renal surgery [Unknown]
  - Foot operation [Unknown]
  - Lactic acidosis [Unknown]
  - Chronic obstructive pulmonary disease [Unknown]
  - Deep vein thrombosis [Unknown]
  - Hypertension [Unknown]
  - Leukocytosis [Unknown]
  - Rales [Unknown]
  - Gout [Unknown]
  - Metastases to liver [Unknown]
  - Gastrooesophageal reflux disease [Unknown]
  - Anaemia of chronic disease [Unknown]
  - Pancreatic stent placement [Unknown]
  - Bile duct obstruction [Unknown]
  - Spinal osteoarthritis [Unknown]
  - Vertigo [Unknown]
  - Ear operation [Unknown]

NARRATIVE: CASE EVENT DATE: 20120328
